FAERS Safety Report 16353361 (Version 1)
Quarter: 2019Q2

REPORT INFORMATION
  Report Type: Spontaneous
  Country: US (occurrence: US)
  Receive Date: 20190524
  Receipt Date: 20190524
  Transmission Date: 20190711
  Serious: No
  Sender: FDA-Public Use
  Company Number: US-009507513-1905USA005752

PATIENT
  Sex: Female

DRUGS (1)
  1. ZETIA [Suspect]
     Active Substance: EZETIMIBE
     Dosage: UNK
     Route: 048
     Dates: start: 20181218, end: 20181219

REACTIONS (5)
  - Oropharyngeal pain [Unknown]
  - Nausea [Unknown]
  - Chest discomfort [Unknown]
  - Headache [Unknown]
  - Abdominal pain upper [Unknown]
